FAERS Safety Report 9727486 (Version 1)
Quarter: 2013Q4

REPORT INFORMATION
  Report Type: Spontaneous
  Country: FI (occurrence: FI)
  Receive Date: 20131203
  Receipt Date: 20131203
  Transmission Date: 20140711
  Serious: Yes (Hospitalization)
  Sender: FDA-Public Use
  Company Number: FI-WATSON-2013-21921

PATIENT
  Age: 34 Year
  Sex: Male

DRUGS (2)
  1. TETRACYCLINE [Suspect]
     Indication: PRODUCT USED FOR UNKNOWN INDICATION
     Dosage: 500 MG, DAILY
     Route: 048
     Dates: start: 20131102, end: 20131104
  2. ISOTRETINOIN ALTERNOVA [Concomitant]
     Indication: PRODUCT USED FOR UNKNOWN INDICATION
     Dosage: 20 MG, DAILY
     Route: 048
     Dates: start: 20131104, end: 20131104

REACTIONS (1)
  - Melaena [Recovered/Resolved]
